FAERS Safety Report 9729399 (Version 1)
Quarter: 2013Q4

REPORT INFORMATION
  Report Type: Spontaneous
  Country: US (occurrence: US)
  Receive Date: 20131204
  Receipt Date: 20131204
  Transmission Date: 20140711
  Serious: Yes (Hospitalization)
  Sender: FDA-Public Use
  Company Number: PHHY2013US136517

PATIENT
  Age: 67 Year
  Sex: Female

DRUGS (4)
  1. CARVEDILOL [Suspect]
     Dosage: 3.125 MG, BID
  2. AMLODIPINE [Concomitant]
  3. ASPIRIN [Concomitant]
  4. LEVOTHYROXINE [Concomitant]

REACTIONS (11)
  - Hepatitis [Recovered/Resolved]
  - Abdominal pain [Recovered/Resolved]
  - Nausea [Recovered/Resolved]
  - Fatigue [Recovered/Resolved]
  - Chromaturia [Recovered/Resolved]
  - Ocular icterus [Recovered/Resolved]
  - Jaundice [Recovered/Resolved]
  - Abdominal tenderness [Recovered/Resolved]
  - Hepatic necrosis [Recovered/Resolved]
  - Liver injury [Recovered/Resolved]
  - Lymphocytic infiltration [Recovered/Resolved]
